FAERS Safety Report 6155582-9 (Version None)
Quarter: 2009Q2

REPORT INFORMATION
  Report Type: 
  Country: None (occurrence: None)
  Receive Date: 20090413
  Receipt Date: 20090330
  Transmission Date: 20091009
  Serious: Yes (Life-Threatening, Hospitalization)
  Sender: FDA-Public Use
  Company Number: POMP - 1000536

PATIENT
  Age: 2 Year
  Sex: Female

DRUGS (1)
  1. MYOZYME [Suspect]
     Indication: GLYCOGEN STORAGE DISEASE TYPE II
     Dosage: 20 MG/KG, INTRAVENOUS
     Route: 042
     Dates: start: 20060920

REACTIONS (2)
  - CARDIOPULMONARY FAILURE [None]
  - INFLUENZA [None]
